FAERS Safety Report 16902131 (Version 5)
Quarter: 2019Q4

REPORT INFORMATION
  Report Type: Spontaneous
  Country: CA (occurrence: CA)
  Receive Date: 20191010
  Receipt Date: 20191224
  Transmission Date: 20200122
  Serious: Yes (Other)
  Sender: FDA-Public Use
  Company Number: CA-CELLTRION INC.-2019CA023766

PATIENT

DRUGS (12)
  1. INFLECTRA [Suspect]
     Active Substance: INFLIXIMAB-DYYB
     Dosage: 500 MG, DAY 1, 5, 19/20 THEN EVERY 4 WEEKS
     Route: 042
     Dates: start: 20190806, end: 20190806
  2. INFLECTRA [Suspect]
     Active Substance: INFLIXIMAB-DYYB
     Dosage: 500 MG, DAY 1, 5, 19/20 THEN EVERY 4 WEEKS
     Route: 042
     Dates: start: 20190828
  3. ENTOCORT [Concomitant]
     Active Substance: BUDESONIDE
     Dosage: 9 MG, UNK
     Dates: start: 20190802
  4. INFLECTRA [Suspect]
     Active Substance: INFLIXIMAB-DYYB
     Indication: COLITIS ULCERATIVE
     Dosage: 500 MG, DAY 1, 5, 19/20 THEN EVERY 4 WEEKS
     Route: 042
     Dates: start: 20190806, end: 20190806
  5. INFLECTRA [Suspect]
     Active Substance: INFLIXIMAB-DYYB
     Dosage: 500 MG, DAY 1, 5, 19/20 THEN EVERY 4 WEEKS
     Route: 042
     Dates: start: 20190806, end: 20190806
  6. INFLECTRA [Suspect]
     Active Substance: INFLIXIMAB-DYYB
     Dosage: 500 MG, DAY 1, 5, 19/20 THEN EVERY 4 WEEKS
     Route: 042
     Dates: start: 20190918
  7. INFLECTRA [Suspect]
     Active Substance: INFLIXIMAB-DYYB
     Dosage: 500 MG, DAY 1, 5, 19/20 THEN EVERY 4 WEEKS
     Route: 042
     Dates: start: 20190918, end: 20190918
  8. PREDNISONE. [Concomitant]
     Active Substance: PREDNISONE
     Dosage: 15 MG, TAPERING
     Dates: start: 2019
  9. LANTUS [Concomitant]
     Active Substance: INSULIN GLARGINE
     Indication: DIABETES MELLITUS
     Dosage: UNK
  10. HUMALOG [Concomitant]
     Active Substance: INSULIN LISPRO
     Indication: DIABETES MELLITUS
     Dosage: UNK
  11. INFLECTRA [Suspect]
     Active Substance: INFLIXIMAB-DYYB
     Dosage: 500 MG, DAY 1, 5, 19/20 THEN EVERY 4 WEEKS
     Route: 042
     Dates: start: 20190812
  12. INFLECTRA [Suspect]
     Active Substance: INFLIXIMAB-DYYB
     Dosage: 500 MG, DAY 1, 5, 19/20 THEN EVERY 4 WEEKS
     Route: 042
     Dates: start: 20190806, end: 20190806

REACTIONS (7)
  - Off label use [Unknown]
  - Faecal calprotectin increased [Unknown]
  - Asthenia [Unknown]
  - Drug level above therapeutic [Unknown]
  - Therapeutic response shortened [Not Recovered/Not Resolved]
  - Intentional product use issue [Unknown]
  - Inappropriate schedule of product administration [Unknown]

NARRATIVE: CASE EVENT DATE: 20190812
